FAERS Safety Report 5862689-X (Version None)
Quarter: 2008Q3

REPORT INFORMATION
  Report Type: 
  Country: None (occurrence: None)
  Receive Date: 20080818
  Receipt Date: 20080619
  Transmission Date: 20090109
  Serious: No
  Sender: FDA-Public Use
  Company Number: WAES 0806USA07528

PATIENT
  Age: 53 Year
  Sex: Female

DRUGS (3)
  1. JANUVIA [Suspect]
     Indication: BLOOD GLUCOSE INCREASED
     Dosage: 100 MG/DAILY/PO
     Route: 048
     Dates: start: 20080529
  2. GLUCOPHAGE [Concomitant]
  3. LANTUS [Concomitant]

REACTIONS (1)
  - DRUG INEFFECTIVE [None]
